FAERS Safety Report 12925687 (Version 2)
Quarter: 2017Q1

REPORT INFORMATION
  Report Type: Spontaneous
  Country: JP (occurrence: JP)
  Receive Date: 20161109
  Receipt Date: 20170320
  Transmission Date: 20170428
  Serious: Yes (Hospitalization)
  Sender: FDA-Public Use
  Company Number: JP-PFIZER INC-2016516429

PATIENT
  Age: 87 Year
  Sex: Male
  Weight: 41 kg

DRUGS (3)
  1. GLIVEC [Concomitant]
     Active Substance: IMATINIB MESYLATE
     Indication: GASTROINTESTINAL STROMAL TUMOUR
     Dosage: 200 MG, DAILY
     Route: 048
     Dates: end: 20161031
  2. HALCION [Suspect]
     Active Substance: TRIAZOLAM
     Dosage: 0.25 MG, 1X/DAY
     Route: 048
     Dates: end: 20161031
  3. GLIVEC [Concomitant]
     Active Substance: IMATINIB MESYLATE
     Indication: METASTASES TO LIVER

REACTIONS (1)
  - Pneumonia aspiration [Recovered/Resolved]

NARRATIVE: CASE EVENT DATE: 20161031
